FAERS Safety Report 9605931 (Version 2)
Quarter: 2013Q4

REPORT INFORMATION
  Report Type: Spontaneous
  Country: VE (occurrence: VE)
  Receive Date: 20131008
  Receipt Date: 20131008
  Transmission Date: 20140711
  Serious: Yes (Other)
  Sender: FDA-Public Use
  Company Number: VE-ABBVIE-13P-178-1091148-00

PATIENT
  Age: 5 Month
  Sex: Female
  Weight: 6 kg

DRUGS (1)
  1. SEVORANE [Suspect]
     Indication: INDUCTION AND MAINTENANCE OF ANAESTHESIA
     Route: 055
     Dates: start: 20130426, end: 20130426

REACTIONS (1)
  - Delayed recovery from anaesthesia [Recovered/Resolved]
